FAERS Safety Report 11188964 (Version 1)
Quarter: 2015Q2

REPORT INFORMATION
  Report Type: Spontaneous
  Country: US (occurrence: US)
  Receive Date: 20150615
  Receipt Date: 20150615
  Transmission Date: 20150821
  Serious: No
  Sender: FDA-Public Use
  Company Number: US-BIOGENIDEC-2015BI081015

PATIENT
  Sex: Male

DRUGS (1)
  1. TECFIDERA [Suspect]
     Active Substance: DIMETHYL FUMARATE
     Indication: MULTIPLE SCLEROSIS
     Dates: start: 201310, end: 201312

REACTIONS (6)
  - Depression [Not Recovered/Not Resolved]
  - General physical health deterioration [Not Recovered/Not Resolved]
  - Intentional product use issue [Unknown]
  - Gastrointestinal disorder [Recovered/Resolved]
  - Vitamin D decreased [Not Recovered/Not Resolved]
  - Flushing [Recovered/Resolved]
